FAERS Safety Report 7601731-2 (Version None)
Quarter: 2011Q3

REPORT INFORMATION
  Report Type: 
  Country: None (occurrence: None)
  Receive Date: 20110711
  Receipt Date: 20110704
  Transmission Date: 20111222
  Serious: Yes (Other)
  Sender: FDA-Public Use
  Company Number: DE-ABBOTT-10P-062-0692171-00

PATIENT
  Age: 80 Year
  Sex: Male

DRUGS (11)
  1. RAMILICH COMP [Concomitant]
     Indication: PRODUCT USED FOR UNKNOWN INDICATION
     Route: 065
  2. TORSEMIDE [Concomitant]
     Indication: PRODUCT USED FOR UNKNOWN INDICATION
  3. ASPIRIN [Concomitant]
     Indication: PRODUCT USED FOR UNKNOWN INDICATION
     Route: 048
  4. FLUVASTATIN [Concomitant]
     Indication: PRODUCT USED FOR UNKNOWN INDICATION
     Route: 048
  5. TEVETEN HCT [Suspect]
     Dates: start: 20100501
  6. SPASMEX [Concomitant]
     Indication: PRODUCT USED FOR UNKNOWN INDICATION
     Route: 065
  7. TEVETEN HCT [Suspect]
     Indication: PRODUCT USED FOR UNKNOWN INDICATION
  8. TEVETEN HCT [Suspect]
     Dates: start: 20101001
  9. ALLOPURINOL [Concomitant]
     Indication: PRODUCT USED FOR UNKNOWN INDICATION
  10. ISOSORBIDE DINITRATE [Concomitant]
     Indication: PRODUCT USED FOR UNKNOWN INDICATION
     Route: 065
  11. FUROSEMIDE [Concomitant]
     Indication: PRODUCT USED FOR UNKNOWN INDICATION
     Route: 048

REACTIONS (6)
  - HEMIPLEGIA [None]
  - ABASIA [None]
  - PRODUCT QUALITY ISSUE [None]
  - GAIT DISTURBANCE [None]
  - DRUG INEFFECTIVE [None]
  - PAIN [None]
